FAERS Safety Report 4985494-5 (Version None)
Quarter: 2006Q2

REPORT INFORMATION
  Report Type: 
  Country: None (occurrence: None)
  Receive Date: 20060428
  Receipt Date: 20050518
  Transmission Date: 20061013
  Serious: No
  Sender: FDA-Public Use
  Company Number: US-GLAXOSMITHKLINE-A0559172A

PATIENT
  Age: 66 Year
  Sex: Male

DRUGS (6)
  1. FLOVENT [Suspect]
     Indication: CHRONIC OBSTRUCTIVE PULMONARY DISEASE
     Dosage: 2PUFF TWO TIMES PER WEEK
     Route: 055
  2. SEREVENT [Suspect]
     Indication: CHRONIC OBSTRUCTIVE PULMONARY DISEASE
     Route: 055
  3. ALBUTEROL SULFATE AUTOHALER [Concomitant]
  4. PHENOBARBITAL TAB [Concomitant]
  5. DILANTIN [Concomitant]
  6. TERAZOSIN HCL [Concomitant]

REACTIONS (1)
  - DRUG INEFFECTIVE [None]
